FAERS Safety Report 21696635 (Version 1)
Quarter: 2022Q4

REPORT INFORMATION
  Report Type: Spontaneous
  Country: DE (occurrence: DE)
  Receive Date: 20221207
  Receipt Date: 20221207
  Transmission Date: 20230113
  Serious: Yes (Death, Hospitalization, Other)
  Sender: FDA-Public Use
  Company Number: None

PATIENT
  Age: 69 Year
  Sex: Male

DRUGS (6)
  1. CARBOPLATIN [Suspect]
     Active Substance: CARBOPLATIN
     Indication: Oesophageal carcinoma
     Dosage: THE RADIATION DOSAGE WAS 39.6 GY OF CALCULATED 41.4 GY/ FIVE CYCLES
  2. DOCETAXEL [Suspect]
     Active Substance: DOCETAXEL
     Indication: Adenocarcinoma
  3. FLUOROURACIL [Suspect]
     Active Substance: FLUOROURACIL
     Indication: Oesophageal carcinoma
  4. OXALIPLATIN [Suspect]
     Active Substance: OXALIPLATIN
     Indication: Adenocarcinoma
  5. PACLITAXEL [Suspect]
     Active Substance: PACLITAXEL
     Indication: Oesophageal carcinoma
     Dosage: THE RADIATION DOSAGE WAS 39.6 GY OF CALCULATED 41.4 GY/ FIVE CYCLES
  6. LEUCOVORIN [Suspect]
     Active Substance: LEUCOVORIN
     Indication: Oesophageal carcinoma

REACTIONS (6)
  - Leukopenia [Unknown]
  - Progressive multifocal leukoencephalopathy [Fatal]
  - Lymphopenia [Unknown]
  - JC virus infection [Fatal]
  - Infection reactivation [Fatal]
  - Off label use [Unknown]
